FAERS Safety Report 17524117 (Version 2)
Quarter: 2020Q1

REPORT INFORMATION
  Report Type: Spontaneous
  Country: US (occurrence: US)
  Receive Date: 20200311
  Receipt Date: 20200315
  Transmission Date: 20200409
  Serious: No
  Sender: FDA-Public Use
  Company Number: US-AMGEN-USASP2020039035

PATIENT
  Age: 64 Year
  Sex: Female

DRUGS (1)
  1. EVENITY [Suspect]
     Active Substance: ROMOSOZUMAB-AQQG
     Indication: OSTEOPOROSIS POSTMENOPAUSAL
     Dosage: 210 MILLIGRAM, QMO
     Route: 065
     Dates: start: 201912

REACTIONS (6)
  - Injection site bruising [Unknown]
  - Injection site erythema [Not Recovered/Not Resolved]
  - Blood pressure systolic increased [Unknown]
  - Injection site pain [Not Recovered/Not Resolved]
  - Injection site swelling [Recovering/Resolving]
  - Injection site mass [Unknown]

NARRATIVE: CASE EVENT DATE: 201912
